FAERS Safety Report 7064835-1 (Version None)
Quarter: 2010Q4

REPORT INFORMATION
  Report Type: 
  Country: None (occurrence: None)
  Receive Date: 20101021
  Receipt Date: 20101021
  Transmission Date: 20110411
  Serious: No
  Sender: FDA-Public Use
  Company Number: None

PATIENT
  Age: 66 Year
  Sex: Male
  Weight: 77 kg

DRUGS (2)
  1. ASPIRIN [Suspect]
     Dosage: 81MG QDAY PO
     Route: 048
  2. SIMVASTATIN [Suspect]
     Dosage: 20MG QDAY PO
     Route: 048

REACTIONS (4)
  - MIDDLE INSOMNIA [None]
  - OEDEMA PERIPHERAL [None]
  - PRURITUS [None]
  - SWOLLEN TONGUE [None]
